FAERS Safety Report 25018202 (Version 1)
Quarter: 2025Q1

REPORT INFORMATION
  Report Type: Report from Study
  Country: US (occurrence: US)
  Receive Date: 20250227
  Receipt Date: 20250227
  Transmission Date: 20250409
  Serious: Yes (Hospitalization, Other)
  Sender: ETON PHARMACEUTICALS, INC
  Company Number: US-ETON PHARMACEUTICALS, INC-2025ETO000063

PATIENT

DRUGS (5)
  1. ALKINDI SPRINKLE [Suspect]
     Active Substance: HYDROCORTISONE
     Indication: Primary adrenal insufficiency
     Dosage: 1 MILLIGRAM, BID
     Route: 048
     Dates: start: 20230706, end: 20250129
  2. ALKINDI SPRINKLE [Suspect]
     Active Substance: HYDROCORTISONE
     Dosage: 2 MILLIGRAM, QD
     Route: 048
     Dates: start: 20230706, end: 20250129
  3. FLUDROCORTISONE [FLUDROCORTISONE ACETATE] [Concomitant]
     Indication: Product used for unknown indication
  4. SODIUM CHLORIDE [Concomitant]
     Active Substance: SODIUM CHLORIDE
     Indication: Product used for unknown indication
  5. TYLENOL [Concomitant]
     Active Substance: ACETAMINOPHEN
     Indication: Product used for unknown indication

REACTIONS (3)
  - Brain injury [Not Recovered/Not Resolved]
  - Seizure [Not Recovered/Not Resolved]
  - Blood glucose increased [Not Recovered/Not Resolved]

NARRATIVE: CASE EVENT DATE: 20250129
